FAERS Safety Report 9018679 (Version 3)
Quarter: 2014Q3

REPORT INFORMATION
  Report Type: Report from Study
  Country: NZ (occurrence: NZ)
  Receive Date: 20130118
  Receipt Date: 20140702
  Transmission Date: 20150326
  Serious: Yes (Life-Threatening, Hospitalization, Other)
  Sender: FDA-Public Use
  Company Number: PHHY2013NZ004482

PATIENT
  Age: 54 Year
  Sex: Female

DRUGS (11)
  1. CHLORAZEPAM [Concomitant]
     Dosage: UNK UKN, UNK
     Route: 048
  2. CITALOPRAM [Concomitant]
     Active Substance: CITALOPRAM HYDROBROMIDE
     Dosage: UNK UKN, UNK
  3. SODIUM VALPROATE [Concomitant]
     Active Substance: VALPROATE SODIUM
  4. SIMVASTATIN. [Concomitant]
     Active Substance: SIMVASTATIN
     Dosage: UNK UKN, UNK
  5. CLOZARIL [Suspect]
     Active Substance: CLOZAPINE
     Dosage: 50 MG, DAILY (AT NIGHT FOR FOUR WEEKS)
     Route: 048
     Dates: start: 20140422
  6. CLOZARIL [Suspect]
     Active Substance: CLOZAPINE
     Indication: SCHIZOPHRENIA
     Dosage: 200 MG (NOCTE)
     Route: 048
     Dates: start: 20100426
  7. OMEPRAZOLE. [Concomitant]
     Active Substance: OMEPRAZOLE
     Dosage: UNK UKN, UNK
  8. CLONAZEPAM. [Concomitant]
     Active Substance: CLONAZEPAM
     Route: 048
  9. LEVOTHYROXINE [Concomitant]
     Active Substance: LEVOTHYROXINE
  10. METFORMIN [Concomitant]
     Active Substance: METFORMIN HYDROCHLORIDE
  11. CILAZAPRIL [Concomitant]
     Active Substance: CILAZAPRIL ANHYDROUS
     Dosage: UNK UKN, UNK

REACTIONS (13)
  - Renal impairment [Recovering/Resolving]
  - White blood cell count increased [Recovering/Resolving]
  - Hypotension [Recovering/Resolving]
  - Biliary sepsis [Unknown]
  - Weight loss poor [Unknown]
  - Liver function test abnormal [Unknown]
  - Neutrophil count increased [Recovering/Resolving]
  - Sepsis [Recovering/Resolving]
  - General physical condition abnormal [Unknown]
  - Malaise [Recovering/Resolving]
  - Product blister packaging issue [Unknown]
  - Body temperature increased [Recovering/Resolving]
  - Obesity [Unknown]

NARRATIVE: CASE EVENT DATE: 20130108
